FAERS Safety Report 7743363 (Version 3)
Quarter: 2013Q3

REPORT INFORMATION
  Report Type: Spontaneous
  Country: US (occurrence: US)
  Receive Date: 20101229
  Receipt Date: 20130829
  Transmission Date: 20140515
  Serious: Yes (Hospitalization, Other)
  Sender: FDA-Public Use
  Company Number: US-TEVA-260502USA

PATIENT
  Age: 20 Year
  Sex: Male

DRUGS (4)
  1. CEFTRIAXONE SODIUM FOR INJECTION USP,10G/100ML [Suspect]
     Indication: TENOSYNOVITIS
     Dosage: 1 DOSE
  2. DOXYCYCLINE [Suspect]
     Indication: TENOSYNOVITIS
  3. VANCOMYCIN [Suspect]
     Indication: TENOSYNOVITIS
     Dosage: 1 DOSE
  4. SULFAMETHOXAZOLE W/TRIMETHOPRIM [Suspect]
     Indication: TENOSYNOVITIS

REACTIONS (2)
  - Drug reaction with eosinophilia and systemic symptoms [Recovered/Resolved]
  - Human herpesvirus 6 infection [Recovered/Resolved]
